FAERS Safety Report 4561193-9 (Version None)
Quarter: 2005Q1

REPORT INFORMATION
  Report Type: 
  Country: None (occurrence: None)
  Receive Date: 20050124
  Receipt Date: 20050120
  Transmission Date: 20050727
  Serious: Yes (Hospitalization)
  Sender: FDA-Public Use
  Company Number: A044-002-005422

PATIENT
  Age: 83 Year
  Sex: Male

DRUGS (3)
  1. ARICEPT [Suspect]
     Indication: DEMENTIA ALZHEIMER'S TYPE
     Dosage: 10 MG, 1 IN 1 D, ORAL
     Route: 048
     Dates: end: 20041208
  2. HEPT-A-MYL (HEPTAMINOL) [Suspect]
     Indication: ORTHOSTATIC HYPOTENSION
     Dosage: 375.6 MG, ORAL
     Route: 048
     Dates: end: 20041208
  3. TIAPRIDE (TIAPRIDE) [Suspect]
     Dosage: 50 MG, ORAL
     Route: 048
     Dates: end: 20041208

REACTIONS (2)
  - HENOCH-SCHONLEIN PURPURA [None]
  - RASH MACULO-PAPULAR [None]
